FAERS Safety Report 18212606 (Version 2)
Quarter: 2020Q3

REPORT INFORMATION
  Report Type: Spontaneous
  Country: GB (occurrence: GB)
  Receive Date: 20200831
  Receipt Date: 20200915
  Transmission Date: 20201103
  Serious: Yes (Other)
  Sender: FDA-Public Use
  Company Number: GB-TAKEDA-2020TUS036242

PATIENT
  Age: 70 Year
  Sex: Male
  Weight: 70 kg

DRUGS (9)
  1. TAMSULOSIN [Concomitant]
     Active Substance: TAMSULOSIN
     Dosage: 400 MICROGRAM, QD
  2. ENTYVIO [Suspect]
     Active Substance: VEDOLIZUMAB
     Indication: COLITIS ULCERATIVE
     Dosage: UNK
     Route: 042
     Dates: start: 20200730
  3. MESALAZINE [Concomitant]
     Active Substance: MESALAMINE
     Dosage: 1 GRAM, QD
     Route: 054
  4. TADALAFIL. [Concomitant]
     Active Substance: TADALAFIL
     Dosage: 20 MILLIGRAM
  5. HYPROMELLOSE [Concomitant]
     Active Substance: HYPROMELLOSES
     Dosage: UNK UNK, TID
     Route: 047
  6. OCTASA [Concomitant]
     Active Substance: MESALAMINE
     Dosage: 800 MILLIGRAM, BID
  7. OCTASA [Concomitant]
     Active Substance: MESALAMINE
     Dosage: 1600 MILLIGRAM, BID
  8. RAMIPRIL. [Concomitant]
     Active Substance: RAMIPRIL
     Dosage: 1.25 MILLIGRAM, QD
  9. TRAMADOL. [Concomitant]
     Active Substance: TRAMADOL
     Dosage: 50 MILLIGRAM

REACTIONS (3)
  - Abdominal pain [Recovered/Resolved]
  - Fatigue [Recovered/Resolved]
  - Transient ischaemic attack [Recovered/Resolved]

NARRATIVE: CASE EVENT DATE: 20200804
